FAERS Safety Report 6018921-5 (Version None)
Quarter: 2008Q4

REPORT INFORMATION
  Report Type: 
  Country: None (occurrence: None)
  Receive Date: 20081224
  Receipt Date: 20081216
  Transmission Date: 20090506
  Serious: Yes (Other)
  Sender: FDA-Public Use
  Company Number: US-PFIZER INC-2008098456

PATIENT
  Sex: Male
  Weight: 127 kg

DRUGS (11)
  1. TIKOSYN [Suspect]
     Indication: ATRIAL FIBRILLATION
     Dates: start: 20080215
  2. XALATAN [Suspect]
     Indication: GLAUCOMA
     Dosage: 0.005%, 1 DROP IN EACH EYE AT BEDTIME
  3. ACCUPRIL [Concomitant]
     Dosage: DAILY
  4. GLYBURIDE [Concomitant]
     Dosage: DAILY
  5. COSOPT [Concomitant]
     Indication: GLAUCOMA
     Route: 047
  6. ALPHAGAN [Concomitant]
     Indication: GLAUCOMA
     Route: 047
  7. SYSTANE [Concomitant]
     Indication: DRY EYE
     Dosage: AS NEEDED, SEVERAL TIMES DURING THE DAY
     Route: 047
  8. WARFARIN SODIUM [Concomitant]
  9. DILTIAZEM [Concomitant]
  10. DARVOCET [Concomitant]
     Dosage: UNK
  11. ACETAMINOPHEN [Concomitant]
     Dosage: UNK

REACTIONS (6)
  - CARDIOVERSION [None]
  - GLAUCOMA [None]
  - HAEMATURIA [None]
  - SKIN INFECTION [None]
  - TOOTH EXTRACTION [None]
  - URINARY TRACT INFECTION [None]
